FAERS Safety Report 20604394 (Version 3)
Quarter: 2022Q4

REPORT INFORMATION
  Report Type: Spontaneous
  Country: US (occurrence: US)
  Receive Date: 20220316
  Receipt Date: 20221220
  Transmission Date: 20230112
  Serious: Yes (Hospitalization)
  Sender: FDA-Public Use
  Company Number: US-THERATECHNOLOGIES INC.-2022-THE-IBA-000043

PATIENT

DRUGS (2)
  1. TROGARZO [Suspect]
     Active Substance: IBALIZUMAB-UIYK
     Indication: HIV infection
     Dosage: 800 MG, EVERY OTHER WEEK
     Route: 042
     Dates: start: 202201
  2. TROGARZO [Suspect]
     Active Substance: IBALIZUMAB-UIYK
     Dosage: LOADING DOSE
     Route: 042
     Dates: start: 20221202, end: 20221202

REACTIONS (4)
  - Influenza [Recovered/Resolved]
  - Pneumonia [Recovered/Resolved]
  - Heart rate increased [Unknown]
  - Rash [Unknown]
